FAERS Safety Report 11349345 (Version 1)
Quarter: 2015Q3

REPORT INFORMATION
  Report Type: Spontaneous
  Country: US (occurrence: None)
  Receive Date: 20150630
  Receipt Date: 20150630
  Transmission Date: 20151125
  Serious: Yes (Other)
  Sender: FDA-Public Use
  Company Number: 2014COV00188

PATIENT
  Age: 64 Year
  Sex: Female
  Weight: 72.6 kg

DRUGS (4)
  1. PLAQUENIL [Suspect]
     Active Substance: HYDROXYCHLOROQUINE SULFATE
  2. LETAIRIS [Concomitant]
     Active Substance: AMBRISENTAN
  3. ADCIRCA [Concomitant]
     Active Substance: TADALAFIL
  4. TYVASO [Suspect]
     Active Substance: TREPROSTINIL
     Indication: PULMONARY ARTERIAL HYPERTENSION
     Dates: start: 20130323

REACTIONS (1)
  - Macular degeneration [None]

NARRATIVE: CASE EVENT DATE: 2014
